FAERS Safety Report 18297122 (Version 1)
Quarter: 2020Q3

REPORT INFORMATION
  Report Type: Report from Study
  Country: FR (occurrence: FR)
  Receive Date: 20200923
  Receipt Date: 20200923
  Transmission Date: 20201103
  Serious: Yes (Other)
  Sender: FDA-Public Use
  Company Number: FR-AUROBINDO-AUR-APL-2020-047712

PATIENT
  Age: 55 Year
  Sex: Female

DRUGS (4)
  1. CEFTRIAXONE. [Concomitant]
     Active Substance: CEFTRIAXONE
     Indication: SKIN TEST
     Dosage: 1 GRAM
     Route: 065
  2. CEFUROXIME. [Suspect]
     Active Substance: CEFUROXIME
     Indication: SKIN TEST
     Dosage: 250 MILLIGRAM
     Route: 065
  3. CEFPODOXIME [Concomitant]
     Active Substance: CEFPODOXIME
     Indication: SKIN TEST
     Dosage: 100 MILLIGRAM
     Route: 065
  4. AMOXICILLIN. [Suspect]
     Active Substance: AMOXICILLIN
     Indication: SKIN TEST
     Dosage: UNK
     Route: 065

REACTIONS (3)
  - Urticaria [Unknown]
  - Therapeutic product cross-reactivity [Unknown]
  - Angioedema [Unknown]
